FAERS Safety Report 4997790-6 (Version None)
Quarter: 2006Q2

REPORT INFORMATION
  Report Type: 
  Country: None (occurrence: None)
  Receive Date: 20060510
  Receipt Date: 20060504
  Transmission Date: 20061013
  Serious: Yes (Congenital Anomaly, Other)
  Sender: FDA-Public Use
  Company Number: CA-AMGEN-US177489

PATIENT
  Age: 22 Month
  Sex: Female

DRUGS (1)
  1. ENBREL [Suspect]
     Indication: RHEUMATOID ARTHRITIS
     Route: 064

REACTIONS (5)
  - CEREBRAL VENTRICLE DILATATION [None]
  - DRUG EXPOSURE DURING PREGNANCY [None]
  - HEAD CIRCUMFERENCE ABNORMAL [None]
  - OPTIC NERVE HYPOPLASIA [None]
  - PREMATURE BABY [None]
